FAERS Safety Report 21156506 (Version 1)
Quarter: 2022Q3

REPORT INFORMATION
  Report Type: Spontaneous
  Country: US (occurrence: US)
  Receive Date: 20220801
  Receipt Date: 20220801
  Transmission Date: 20221026
  Serious: Yes (Other)
  Sender: FDA-Public Use
  Company Number: US-PADAGIS-2022PAD00141

PATIENT

DRUGS (2)
  1. CICLOPIROX [Suspect]
     Active Substance: CICLOPIROX
     Indication: Onychomycosis
     Dosage: UNK
     Route: 065
  2. METFORMIN [Concomitant]
     Active Substance: METFORMIN HYDROCHLORIDE
     Indication: Glucose tolerance impaired
     Dosage: UNK
     Route: 065

REACTIONS (7)
  - Diverticulitis [Unknown]
  - Nail discolouration [Unknown]
  - Nail discolouration [Unknown]
  - Hernia [Unknown]
  - Disease recurrence [Not Recovered/Not Resolved]
  - Product packaging issue [Unknown]
  - Product container issue [Unknown]
